FAERS Safety Report 8734140 (Version 2)
Quarter: 2012Q4

REPORT INFORMATION
  Report Type: Report from Study
  Country: CO (occurrence: CO)
  Receive Date: 20120821
  Receipt Date: 20121002
  Transmission Date: 20130627
  Serious: Yes (Other)
  Sender: FDA-Public Use
  Company Number: CO-PFIZER INC-2012202143

PATIENT
  Age: 67 Year
  Sex: Female

DRUGS (4)
  1. LIPITOR [Suspect]
     Indication: DYSLIPIDAEMIA
     Dosage: 10 mg every 24 hours
  2. ASA [Concomitant]
     Dosage: 100 mg every 24 hours
  3. METFORMIN [Concomitant]
     Dosage: 850 mg every 8 hours
  4. GLIBENCLAMIDE [Concomitant]
     Dosage: 5 mg every 12 hours

REACTIONS (3)
  - Renal failure chronic [Unknown]
  - Leukocyturia [Unknown]
  - Heart rate decreased [Unknown]
